FAERS Safety Report 8607523-X (Version None)
Quarter: 2012Q3

REPORT INFORMATION
  Report Type: 
  Country: None (occurrence: None)
  Receive Date: 20120809
  Receipt Date: 20120809
  Transmission Date: 20120928
  Serious: No
  Sender: FDA-Public Use
  Company Number: None

PATIENT
  Age: 62 Year
  Sex: Male
  Weight: 84.5 kg

DRUGS (1)
  1. ADALIMUMAB [Suspect]
     Dosage: 40 MG, SQ
     Route: 058
     Dates: start: 20101119, end: 20120106

REACTIONS (2)
  - NEUTROPENIA [None]
  - WHITE BLOOD CELL COUNT DECREASED [None]
